FAERS Safety Report 9193369 (Version 1)
Quarter: 2013Q1

REPORT INFORMATION
  Report Type: Spontaneous
  Country: US (occurrence: US)
  Receive Date: 20130327
  Receipt Date: 20130327
  Transmission Date: 20140127
  Serious: No
  Sender: FDA-Public Use
  Company Number: US-B.I. PHARMACEUTICALS,INC./RIDGEFIELD-2013-BI-07352BP

PATIENT
  Sex: Female
  Weight: 159 kg

DRUGS (4)
  1. SPIRIVA [Suspect]
     Indication: DYSPNOEA
     Dosage: 18 MCG
     Route: 055
     Dates: start: 201302
  2. WARFARIN [Concomitant]
     Indication: FACTOR V LEIDEN MUTATION
  3. EXEMESTANE [Concomitant]
     Indication: BREAST CANCER
     Dates: start: 201212
  4. OMEPRAZOLE [Concomitant]
     Indication: DYSPEPSIA
     Dates: start: 201302

REACTIONS (3)
  - Dyspnoea [Not Recovered/Not Resolved]
  - Product quality issue [Recovered/Resolved]
  - Product quality issue [Recovered/Resolved]
